FAERS Safety Report 20160529 (Version 2)
Quarter: 2025Q1

REPORT INFORMATION
  Report Type: Report from Study
  Country: US (occurrence: US)
  Receive Date: 20211208
  Receipt Date: 20250325
  Transmission Date: 20250409
  Serious: Yes (Hospitalization, Other)
  Sender: TAKEDA
  Company Number: US-TAKEDA-US202034330

PATIENT
  Age: 21 Year
  Sex: Male
  Weight: 54.422 kg

DRUGS (24)
  1. GAMMAGARD LIQUID [Suspect]
     Active Substance: HUMAN IMMUNOGLOBULIN G
     Indication: Primary immunodeficiency syndrome
     Dosage: 10 GRAM, 1/WEEK
  2. GAMMAGARD LIQUID [Suspect]
     Active Substance: HUMAN IMMUNOGLOBULIN G
     Indication: Hypogammaglobulinaemia
     Dosage: 2 GRAM, 1/WEEK
  3. ACETAMINOPHEN [Concomitant]
     Active Substance: ACETAMINOPHEN
  4. CLOBAZAM [Concomitant]
     Active Substance: CLOBAZAM
  5. METOCLOPRAMIDE HYDROCHLORIDE [Concomitant]
     Active Substance: METOCLOPRAMIDE HYDROCHLORIDE
  6. ZYRTEC [Concomitant]
     Active Substance: CETIRIZINE HYDROCHLORIDE
  7. FAMOTIDINE [Concomitant]
     Active Substance: FAMOTIDINE
  8. LORAZEPAM [Concomitant]
     Active Substance: LORAZEPAM
  9. ALBUTEROL SULFATE [Concomitant]
     Active Substance: ALBUTEROL SULFATE
  10. BACLOFEN [Concomitant]
     Active Substance: BACLOFEN
  11. DOXYCYCLINE HYCLATE [Concomitant]
     Active Substance: DOXYCYCLINE HYCLATE
  12. LAMOTRIGINE [Concomitant]
     Active Substance: LAMOTRIGINE
  13. ALBUTEROL SULFATE [Concomitant]
     Active Substance: ALBUTEROL SULFATE
  14. SALINE [Concomitant]
     Active Substance: SODIUM CHLORIDE
  15. LIDOCAINE [Concomitant]
     Active Substance: LIDOCAINE
  16. OXYBUTYNIN CHLORIDE [Concomitant]
     Active Substance: OXYBUTYNIN CHLORIDE
  17. MUPIROCIN [Concomitant]
     Active Substance: MUPIROCIN
  18. NYSTATIN [Concomitant]
     Active Substance: NYSTATIN
  19. SACCHAROMYCES CEREVISIAE [Concomitant]
     Active Substance: SACCHAROMYCES CEREVISIAE
  20. DIAZEPAM [Concomitant]
     Active Substance: DIAZEPAM
  21. DIPHENHYDRAMINE HYDROCHLORIDE [Concomitant]
     Active Substance: DIPHENHYDRAMINE HYDROCHLORIDE
  22. POLYETHYLENE GLYCOL [Concomitant]
     Active Substance: POLYETHYLENE GLYCOL
  23. KEPPRA [Concomitant]
     Active Substance: LEVETIRACETAM
  24. ONFI [Concomitant]
     Active Substance: CLOBAZAM

REACTIONS (7)
  - Pneumonia [Unknown]
  - Spinal cord injury [Unknown]
  - Scoliosis [Unknown]
  - Procedural complication [Unknown]
  - Paralysis [Unknown]
  - Seizure [Unknown]
  - Immunoglobulins increased [Unknown]

NARRATIVE: CASE EVENT DATE: 20201016
